FAERS Safety Report 9026815 (Version 2)
Quarter: 2013Q1

REPORT INFORMATION
  Report Type: Spontaneous
  Country: JP (occurrence: JP)
  Receive Date: 20130123
  Receipt Date: 20130205
  Transmission Date: 20140127
  Serious: Yes (Other)
  Sender: FDA-Public Use
  Company Number: JP-PFIZER INC-2013026451

PATIENT
  Sex: Male

DRUGS (4)
  1. ALDACTONE A [Suspect]
     Dosage: UNK
     Route: 048
     Dates: start: 201301
  2. SOLDACTONE [Suspect]
     Indication: FLUID RETENTION
     Dosage: UNK
     Route: 041
     Dates: start: 20121218, end: 20121231
  3. SOLDACTONE [Suspect]
     Dosage: UNK
     Dates: start: 20130122
  4. FUROSEMIDE [Concomitant]
     Dosage: UNK

REACTIONS (4)
  - Weight decreased [Recovering/Resolving]
  - Asthenia [Recovering/Resolving]
  - Decreased appetite [Recovering/Resolving]
  - Fluid retention [Unknown]
